FAERS Safety Report 5831935-0 (Version None)
Quarter: 2008Q3

REPORT INFORMATION
  Report Type: 
  Country: None (occurrence: None)
  Receive Date: 20080804
  Receipt Date: 20080724
  Transmission Date: 20090109
  Serious: Yes (Hospitalization)
  Sender: FDA-Public Use
  Company Number: BR-BAYER-200816359LA

PATIENT
  Sex: Female

DRUGS (1)
  1. YASMIN [Suspect]
     Indication: DRUG USE FOR UNKNOWN INDICATION
     Route: 048
     Dates: start: 20040101

REACTIONS (4)
  - MENSTRUATION DELAYED [None]
  - NEPHROLITHIASIS [None]
  - POLYMENORRHOEA [None]
  - PREGNANCY ON ORAL CONTRACEPTIVE [None]
